FAERS Safety Report 11677997 (Version 1)
Quarter: 2015Q4

REPORT INFORMATION
  Report Type: Spontaneous
  Country: FR (occurrence: FR)
  Receive Date: 20151028
  Receipt Date: 20151028
  Transmission Date: 20160304
  Serious: Yes (Hospitalization)
  Sender: FDA-Public Use
  Company Number: FR-BAYER-2015-450199

PATIENT
  Age: 57 Year
  Sex: Female

DRUGS (5)
  1. METHOTREXAT [METHOTREXATE] [Suspect]
     Active Substance: METHOTREXATE
     Dosage: DAILY DOSE 2.8570001 MG
     Route: 048
     Dates: start: 201306
  2. CLARITYNE [Suspect]
     Active Substance: LORATADINE
     Dosage: 10 MG, QD
     Route: 048
  3. PRETERAX [Suspect]
     Active Substance: INDAPAMIDE\PERINDOPRIL
     Dosage: 2.5 MG, QD
     Route: 048
  4. SPECIAFOLDINE [Suspect]
     Active Substance: FOLIC ACID
     Dosage: DAILY DOSE .714 MG
     Route: 048
     Dates: start: 201306
  5. REMICADE [Suspect]
     Active Substance: INFLIXIMAB
     Dosage: UNK
     Route: 042
     Dates: start: 20140116

REACTIONS (2)
  - Musculoskeletal pain [Not Recovered/Not Resolved]
  - Neuralgia [Not Recovered/Not Resolved]

NARRATIVE: CASE EVENT DATE: 201503
